FAERS Safety Report 18940083 (Version 1)
Quarter: 2021Q1

REPORT INFORMATION
  Report Type: Spontaneous
  Country: US (occurrence: US)
  Receive Date: 20210225
  Receipt Date: 20210225
  Transmission Date: 20210420
  Serious: Yes (Hospitalization, Other)
  Sender: FDA-Public Use
  Company Number: US-BRISTOL-MYERS SQUIBB COMPANY-BMS-2021-016762

PATIENT
  Sex: Female
  Weight: 89.81 kg

DRUGS (2)
  1. ELIQUIS [Suspect]
     Active Substance: APIXABAN
     Indication: PULMONARY EMBOLISM
     Dosage: 5 MILLIGRAM, BID
     Route: 048
     Dates: start: 201704
  2. ELIQUIS [Suspect]
     Active Substance: APIXABAN
     Indication: THROMBOSIS

REACTIONS (5)
  - Pulmonary embolism [Unknown]
  - Urinary tract infection [Unknown]
  - Pituitary-dependent Cushing^s syndrome [Unknown]
  - Visual impairment [Unknown]
  - Brain neoplasm [Recovering/Resolving]

NARRATIVE: CASE EVENT DATE: 2017
